FAERS Safety Report 4597559-0 (Version None)
Quarter: 2005Q1

REPORT INFORMATION
  Report Type: 
  Country: None (occurrence: None)
  Receive Date: 20050303
  Receipt Date: 20050221
  Transmission Date: 20050727
  Serious: Yes (Other)
  Sender: FDA-Public Use
  Company Number: PT-JNJFOC-20050205109

PATIENT
  Sex: Female
  Weight: 57.5 kg

DRUGS (4)
  1. SPORANOX [Suspect]
     Indication: FUNGAL INFECTION
     Route: 049
  2. IPATROPIUM BROMIDE [Concomitant]
     Route: 055
  3. TIOTROPIUM BROMIDE [Concomitant]
     Route: 055
  4. AMOXICILLIN [Concomitant]
     Route: 049

REACTIONS (9)
  - BLOOD PRESSURE INCREASED [None]
  - CONSTIPATION [None]
  - DYSPNOEA [None]
  - FATIGUE [None]
  - HEADACHE [None]
  - MALAISE [None]
  - TACHYCARDIA [None]
  - TREMOR [None]
  - WEIGHT DECREASED [None]
